FAERS Safety Report 8804654 (Version 1)
Quarter: 2012Q4

REPORT INFORMATION
  Report Type: Spontaneous
  Country: GB (occurrence: None)
  Receive Date: 20120917
  Receipt Date: 20120917
  Transmission Date: 20130627
  Serious: Yes (Life-Threatening, Hospitalization, Other)
  Sender: FDA-Public Use
  Company Number: AUR-APL-2012-03966

PATIENT
  Age: 49 Year
  Sex: Female
  Weight: 45 kg

DRUGS (8)
  1. METFORMIN (METFORMIN) [Suspect]
     Route: 048
     Dates: end: 20120820
  2. ADCAL-D3 (LEKOVITCA) [Concomitant]
  3. CODEINE (CODEINE) [Concomitant]
  4. OMEPRAZOLE (OMEPRAZOLE) [Concomitant]
  5. PRAVASTATIN (PRAVASTATIN) [Concomitant]
  6. ACETYLSALICYLIC ACID (ACETYLSALICYLIC ACID) [Concomitant]
  7. CYCLIZINE (CYCLIZINE) [Concomitant]
  8. PROCHLORPERAZINE (PROCHLORPERAZINE) [Concomitant]

REACTIONS (3)
  - Metabolic acidosis [None]
  - Renal failure acute [None]
  - Acute respiratory distress syndrome [None]
